FAERS Safety Report 10620926 (Version 1)
Quarter: 2014Q4

REPORT INFORMATION
  Report Type: Spontaneous
  Country: IN (occurrence: IN)
  Receive Date: 20141202
  Receipt Date: 20141202
  Transmission Date: 20150529
  Serious: Yes (Hospitalization)
  Sender: FDA-Public Use
  Company Number: PHHY2014IN154780

PATIENT
  Age: 17 Year
  Sex: Female

DRUGS (1)
  1. CEFTRIAXONE. [Suspect]
     Active Substance: CEFTRIAXONE
     Indication: COLITIS
     Dosage: 1 G, Q12H
     Route: 065

REACTIONS (10)
  - Eosinophilia [Recovering/Resolving]
  - Leukocyturia [Recovering/Resolving]
  - Acute kidney injury [Recovered/Resolved]
  - Purpura [Recovering/Resolving]
  - Tubulointerstitial nephritis [Recovered/Resolved]
  - Urine output increased [Recovered/Resolved]
  - Hypersensitivity vasculitis [Recovering/Resolving]
  - Swelling face [Recovering/Resolving]
  - Palpable purpura [Recovering/Resolving]
  - Generalised oedema [Recovering/Resolving]
